FAERS Safety Report 23217662 (Version 2)
Quarter: 2024Q1

REPORT INFORMATION
  Report Type: Spontaneous
  Country: AE (occurrence: AE)
  Receive Date: 20231122
  Receipt Date: 20240227
  Transmission Date: 20240409
  Serious: Yes (Other)
  Sender: FDA-Public Use
  Company Number: AE-ELI_LILLY_AND_COMPANY-AE202311009772

PATIENT
  Age: 56 Year
  Sex: Male
  Weight: 78 kg

DRUGS (3)
  1. OLUMIANT [Suspect]
     Active Substance: BARICITINIB
     Indication: Alopecia areata
     Dosage: 4 MG, DAILY
     Route: 065
     Dates: start: 20221130
  2. DAPAGLIFLOZIN PROPANEDIOL\METFORMIN HYDROCHLORIDE [Concomitant]
     Active Substance: DAPAGLIFLOZIN PROPANEDIOL\METFORMIN HYDROCHLORIDE
     Indication: Product used for unknown indication
     Dosage: 1 DOSAGE FORM, DAILY (5MG-1000MG)
  3. ATORVASTATIN [Concomitant]
     Active Substance: ATORVASTATIN
     Indication: Product used for unknown indication
     Dosage: 10 MG

REACTIONS (1)
  - Myasthenia gravis [Unknown]
